FAERS Safety Report 10004218 (Version 1)
Quarter: 2014Q1

REPORT INFORMATION
  Report Type: Spontaneous
  Country: US (occurrence: US)
  Receive Date: 20140312
  Receipt Date: 20140312
  Transmission Date: 20141002
  Serious: No
  Sender: FDA-Public Use
  Company Number: US-009507513-2011SP059969

PATIENT
  Age: 14 Year
  Sex: Female
  Weight: 94.35 kg

DRUGS (2)
  1. CLARITIN CHEWABLE TABLETS [Suspect]
     Dosage: 40 MG, UNKNOWN
     Route: 048
     Dates: start: 20111213
  2. RISPERDAL [Concomitant]
     Indication: PRODUCT USED FOR UNKNOWN INDICATION
     Dosage: 3 MG, QD

REACTIONS (1)
  - Overdose [Not Recovered/Not Resolved]
